FAERS Safety Report 24385762 (Version 2)
Quarter: 2024Q4

REPORT INFORMATION
  Report Type: Report from Study
  Country: US (occurrence: US)
  Receive Date: 20241001
  Receipt Date: 20241011
  Transmission Date: 20250114
  Serious: Yes (Other)
  Sender: REGENERON
  Company Number: US-REGENERON PHARMACEUTICALS, INC.-2024-121636

PATIENT
  Sex: Female

DRUGS (1)
  1. CEMIPLIMAB [Suspect]
     Active Substance: CEMIPLIMAB
     Indication: Squamous cell carcinoma of skin
     Dosage: 350 MG, Q3W
     Route: 042
     Dates: start: 20240801, end: 20240912

REACTIONS (10)
  - Flatulence [Unknown]
  - Arthropathy [Unknown]
  - Photosensitivity reaction [Unknown]
  - Pain [Unknown]
  - Abdominal pain upper [Unknown]
  - Constipation [Unknown]
  - Headache [Unknown]
  - Fatigue [Unknown]
  - Thyroid function test abnormal [Unknown]
  - Dizziness [Unknown]

NARRATIVE: CASE EVENT DATE: 20240826
